FAERS Safety Report 9341861 (Version 1)
Quarter: 2013Q2

REPORT INFORMATION
  Report Type: Spontaneous
  Country: US (occurrence: None)
  Receive Date: 20130606
  Receipt Date: 20130606
  Transmission Date: 20140414
  Serious: Yes (Hospitalization)
  Sender: FDA-Public Use
  Company Number: US-ZYDUS-001276

PATIENT
  Age: 78 Year
  Sex: Female

DRUGS (2)
  1. WARFARIN (WARFARIN) [Suspect]
  2. ASPIRIN (ASPIRIN) [Suspect]

REACTIONS (3)
  - Spontaneous haematoma [None]
  - Oesophageal disorder [None]
  - Cerebral infarction [None]
